FAERS Safety Report 9219873 (Version 2)
Quarter: 2013Q2

REPORT INFORMATION
  Report Type: Spontaneous
  Country: TW (occurrence: TW)
  Receive Date: 20130409
  Receipt Date: 20130624
  Transmission Date: 20140414
  Serious: Yes (Other)
  Sender: FDA-Public Use
  Company Number: TW-ROCHE-1209401

PATIENT
  Age: 44 Year
  Sex: Male

DRUGS (1)
  1. ACTILYSE [Suspect]
     Indication: ISCHAEMIC STROKE
     Route: 042

REACTIONS (3)
  - Flank pain [Unknown]
  - Back pain [Unknown]
  - Coagulopathy [Unknown]
